FAERS Safety Report 9689858 (Version 3)
Quarter: 2014Q1

REPORT INFORMATION
  Report Type: Spontaneous
  Country: BR (occurrence: BR)
  Receive Date: 20131115
  Receipt Date: 20140212
  Transmission Date: 20141002
  Serious: Yes (Other)
  Sender: FDA-Public Use
  Company Number: BR-ROCHE-1300544

PATIENT
  Sex: Female
  Weight: 45 kg

DRUGS (9)
  1. RIVOTRIL [Suspect]
     Indication: DEPRESSION
     Route: 065
     Dates: start: 2013
  2. RIVOTRIL [Suspect]
     Indication: PANIC DISORDER
     Dosage: HALF TABLET
     Route: 048
     Dates: start: 2010
  3. RIVOTRIL [Suspect]
     Indication: INSOMNIA
     Route: 065
     Dates: start: 2011
  4. RIVOTRIL [Suspect]
     Route: 065
     Dates: start: 2009
  5. CAPTOPRIL [Concomitant]
     Route: 048
     Dates: start: 2007
  6. ATENOLOL [Concomitant]
     Route: 048
     Dates: start: 2010
  7. CITALOPRAM [Concomitant]
     Indication: DEPRESSION
     Route: 065
     Dates: start: 2010
  8. CITALOPRAM [Concomitant]
     Indication: PANIC DISORDER
  9. ENALAPRIL [Concomitant]
     Indication: HYPERTENSION

REACTIONS (13)
  - Hypertension [Unknown]
  - Thyroid neoplasm [Not Recovered/Not Resolved]
  - Depression [Unknown]
  - Mitral valve disease [Not Recovered/Not Resolved]
  - Dysphagia [Not Recovered/Not Resolved]
  - Rhinitis [Unknown]
  - Laryngitis [Not Recovered/Not Resolved]
  - Dysphonia [Not Recovered/Not Resolved]
  - Gastritis [Not Recovered/Not Resolved]
  - Labyrinthitis [Unknown]
  - Blood cholesterol increased [Unknown]
  - Muscular weakness [Recovering/Resolving]
  - Oropharyngeal pain [Recovered/Resolved]
